FAERS Safety Report 6711305-3 (Version None)
Quarter: 2010Q2

REPORT INFORMATION
  Report Type: 
  Country: None (occurrence: None)
  Receive Date: 20100505
  Receipt Date: 20100428
  Transmission Date: 20101027
  Serious: Yes (Life-Threatening, Hospitalization, Other)
  Sender: FDA-Public Use
  Company Number: JP-PFIZER INC-2010055178

PATIENT
  Age: 63 Year
  Sex: Male

DRUGS (6)
  1. ZITHROMAX [Suspect]
     Indication: PHARYNGITIS
     Dosage: UNK
     Route: 048
     Dates: start: 20090409, end: 20090409
  2. FOSFOMYCIN SODIUM [Concomitant]
     Route: 042
     Dates: start: 20100409
  3. KASHIWADOL [Concomitant]
     Route: 042
     Dates: start: 20100409
  4. LOXONIN [Concomitant]
     Dosage: UNK
     Route: 048
  5. MUCOSTA [Concomitant]
     Dosage: UNK
     Route: 048
  6. RANITIDINE HYDROCHLORIDE [Concomitant]
     Dosage: UNK
     Route: 048

REACTIONS (1)
  - EPIGLOTTITIS [None]
